FAERS Safety Report 9376193 (Version 2)
Quarter: 2013Q3

REPORT INFORMATION
  Report Type: Spontaneous
  Country: FR (occurrence: FR)
  Receive Date: 20130701
  Receipt Date: 20130801
  Transmission Date: 20140515
  Serious: Yes (Other)
  Sender: FDA-Public Use
  Company Number: FR-AMGEN-FRASP2013045549

PATIENT
  Age: 74 Year
  Sex: Male

DRUGS (6)
  1. VECTIBIX [Suspect]
     Indication: COLON CANCER
     Dosage: 370 MG, CYCLE
     Route: 042
     Dates: start: 20120413
  2. LANTUS [Concomitant]
     Indication: TYPE 2 DIABETES MELLITUS
     Dosage: UNK UNK, 1 DAY
     Route: 058
  3. HUMALOG [Concomitant]
     Indication: TYPE 2 DIABETES MELLITUS
     Dosage: UNK, 3 DAYS
     Route: 058
  4. ENALAPRIL [Concomitant]
     Indication: HYPERTENSION
     Dosage: 1 DF, 1 DAY
     Route: 048
  5. DIFFU K [Concomitant]
     Indication: HYPOKALAEMIA
     Dosage: 1 DF, 1 DAY
     Route: 048
  6. PARIET [Concomitant]
     Indication: GASTRIC ULCER
     Dosage: 1 DF, 1 DAY
     Route: 048

REACTIONS (2)
  - Hypertension [Recovered/Resolved]
  - Headache [Recovered/Resolved]
